FAERS Safety Report 18409740 (Version 2)
Quarter: 2020Q4

REPORT INFORMATION
  Report Type: Report from Study
  Country: US (occurrence: US)
  Receive Date: 20201021
  Receipt Date: 20201026
  Transmission Date: 20210114
  Serious: Yes (Hospitalization, Other)
  Sender: FDA-Public Use
  Company Number: US-ELI_LILLY_AND_COMPANY-US201609007856

PATIENT
  Age: 62 Year
  Sex: Female

DRUGS (1)
  1. FORTEO [Suspect]
     Active Substance: TERIPARATIDE
     Indication: OSTEOPOROSIS
     Dosage: 20 UG, UNKNOWN
     Route: 058
     Dates: start: 20160416, end: 201702

REACTIONS (11)
  - Myocardial infarction [Unknown]
  - Screaming [Unknown]
  - Nerve compression [Unknown]
  - Mobility decreased [Unknown]
  - Back pain [Unknown]
  - Pain in extremity [Unknown]
  - Post procedural complication [Unknown]
  - Bone disorder [Unknown]
  - Gait disturbance [Recovering/Resolving]
  - Depression [Unknown]
  - Pain [Unknown]

NARRATIVE: CASE EVENT DATE: 20170615
